FAERS Safety Report 25548621 (Version 1)
Quarter: 2025Q3

REPORT INFORMATION
  Report Type: Spontaneous
  Country: US (occurrence: US)
  Receive Date: 20250714
  Receipt Date: 20250714
  Transmission Date: 20251020
  Serious: No
  Sender: BIOGEN
  Company Number: US-BIOGEN-2025BI01316265

PATIENT
  Age: 32 Year
  Sex: Female

DRUGS (8)
  1. ZURZUVAE [Interacting]
     Active Substance: ZURANOLONE
     Indication: Perinatal depression
     Route: 050
     Dates: start: 20250624, end: 20250624
  2. ZURZUVAE [Interacting]
     Active Substance: ZURANOLONE
     Route: 050
     Dates: start: 20250625, end: 20250626
  3. ZURZUVAE [Interacting]
     Active Substance: ZURANOLONE
     Route: 050
     Dates: start: 20250627
  4. GABAPENTIN [Interacting]
     Active Substance: GABAPENTIN
     Indication: Product used for unknown indication
     Route: 050
  5. SUBUTEX [Interacting]
     Active Substance: BUPRENORPHINE HYDROCHLORIDE
     Indication: Product used for unknown indication
     Route: 050
  6. BUSPAR [Concomitant]
     Active Substance: BUSPIRONE HYDROCHLORIDE
     Indication: Product used for unknown indication
     Route: 050
  7. ACETAMINOPHEN [Concomitant]
     Active Substance: ACETAMINOPHEN
     Indication: Product used for unknown indication
     Route: 050
  8. SENNA [Concomitant]
     Active Substance: SENNOSIDES
     Indication: Product used for unknown indication
     Route: 050

REACTIONS (7)
  - Loss of consciousness [Recovered/Resolved]
  - Amnesia [Recovered/Resolved]
  - Hypoacusis [Recovered/Resolved]
  - Face injury [Recovered/Resolved]
  - Haemorrhage [Recovered/Resolved]
  - Lip swelling [Recovered/Resolved]
  - Drug interaction [Unknown]

NARRATIVE: CASE EVENT DATE: 20250624
